FAERS Safety Report 18285320 (Version 1)
Quarter: 2020Q3

REPORT INFORMATION
  Report Type: Spontaneous
  Country: US (occurrence: US)
  Receive Date: 20200918
  Receipt Date: 20200918
  Transmission Date: 20201103
  Serious: No
  Sender: FDA-Public Use
  Company Number: US-TEVA-2020-US-1828574

PATIENT
  Sex: Male

DRUGS (3)
  1. NAPROXEN. [Suspect]
     Active Substance: NAPROXEN
     Route: 065
  2. LODINE [Suspect]
     Active Substance: ETODOLAC
     Route: 065
  3. TAGAMET [Suspect]
     Active Substance: CIMETIDINE
     Route: 065

REACTIONS (1)
  - Enteritis [Unknown]
